FAERS Safety Report 8293985-7 (Version None)
Quarter: 2012Q2

REPORT INFORMATION
  Report Type: 
  Country: None (occurrence: None)
  Receive Date: 20120418
  Receipt Date: 20120410
  Transmission Date: 20120825
  Serious: Yes (Hospitalization)
  Sender: FDA-Public Use
  Company Number: US-BAYER-2011-110379

PATIENT
  Age: 42 Year
  Sex: Female
  Weight: 61.224 kg

DRUGS (5)
  1. DICLOFENAC [Concomitant]
     Dosage: 75 MG, UNK
     Dates: start: 20090414, end: 20090527
  2. YAZ [Suspect]
     Indication: PREMENSTRUAL SYNDROME
     Dosage: UNK
     Route: 048
     Dates: start: 20080801, end: 20090301
  3. YAZ [Suspect]
     Indication: CONTRACEPTION
  4. METRONIDAZOLE [Concomitant]
     Dosage: 500 MG, UNK
     Dates: start: 20090609
  5. CLARITHROMYCIN [Concomitant]
     Dosage: 500 MG, UNK
     Dates: start: 20090609

REACTIONS (9)
  - ABDOMINAL PAIN [None]
  - CHOLELITHIASIS [None]
  - MENTAL DISORDER [None]
  - GALLBLADDER CHOLESTEROLOSIS [None]
  - GENERAL PHYSICAL HEALTH DETERIORATION [None]
  - ANXIETY [None]
  - EMOTIONAL DISTRESS [None]
  - CHOLECYSTITIS CHRONIC [None]
  - PAIN [None]
